FAERS Safety Report 20703694 (Version 8)
Quarter: 2023Q4

REPORT INFORMATION
  Report Type: Report from Study
  Country: US (occurrence: US)
  Receive Date: 20220413
  Receipt Date: 20231030
  Transmission Date: 20240110
  Serious: Yes (Other)
  Sender: FDA-Public Use
  Company Number: US-BEIGENE, LTD-BGN-2022-003558

PATIENT

DRUGS (7)
  1. BRUKINSA [Suspect]
     Active Substance: ZANUBRUTINIB
     Indication: Waldenstrom^s macroglobulinaemia
     Dosage: 80 MILLIGRAM, BID
     Route: 048
  2. BRUKINSA [Suspect]
     Active Substance: ZANUBRUTINIB
     Dosage: 80 MILLIGRAM, BID
     Route: 048
  3. BRUKINSA [Suspect]
     Active Substance: ZANUBRUTINIB
     Dosage: 80 MILLIGRAM, BID
     Route: 048
  4. BRUKINSA [Suspect]
     Active Substance: ZANUBRUTINIB
     Dosage: 160 MILLIGRAM, BID
     Route: 048
  5. BRUKINSA [Suspect]
     Active Substance: ZANUBRUTINIB
     Dosage: 160 MILLIGRAM, BID
     Route: 048
  6. BRUKINSA [Suspect]
     Active Substance: ZANUBRUTINIB
     Dosage: 160 MILLIGRAM, BID
     Route: 048
  7. BRUKINSA [Suspect]
     Active Substance: ZANUBRUTINIB
     Dosage: 160 MILLIGRAM, BID
     Route: 048

REACTIONS (15)
  - Haemorrhage [Unknown]
  - Haemorrhage subcutaneous [Unknown]
  - Eye haemorrhage [Unknown]
  - Macular degeneration [Unknown]
  - Blindness [Unknown]
  - Hepatitis B reactivation [Unknown]
  - Skin discolouration [Recovered/Resolved]
  - Ocular discomfort [Unknown]
  - Skin neoplasm excision [Unknown]
  - Contusion [Unknown]
  - Abdominal discomfort [Unknown]
  - Adverse reaction [Unknown]
  - Illness [Unknown]
  - Prescribed underdose [Unknown]
  - Product use complaint [Unknown]
